FAERS Safety Report 13731652 (Version 2)
Quarter: 2017Q4

REPORT INFORMATION
  Report Type: Report from Study
  Country: BR (occurrence: BR)
  Receive Date: 20170707
  Receipt Date: 20171002
  Transmission Date: 20180320
  Serious: Yes (Other)
  Sender: FDA-Public Use
  Company Number: BR-JNJFOC-20170702033

PATIENT
  Age: 51 Year
  Sex: Female

DRUGS (7)
  1. REMICADE [Suspect]
     Active Substance: INFLIXIMAB
     Indication: RHEUMATOID ARTHRITIS
     Route: 042
     Dates: start: 2005
  2. REMICADE [Suspect]
     Active Substance: INFLIXIMAB
     Indication: RHEUMATOID ARTHRITIS
     Route: 042
     Dates: start: 20160429
  3. KETOPROFEN. [Concomitant]
     Active Substance: KETOPROFEN
     Route: 065
  4. PREDNISONE. [Concomitant]
     Active Substance: PREDNISONE
     Route: 065
  5. MELOXICAM. [Concomitant]
     Active Substance: MELOXICAM
     Route: 065
  6. CALCIUM [Concomitant]
     Active Substance: CALCIUM
     Route: 065
  7. REMICADE [Suspect]
     Active Substance: INFLIXIMAB
     Indication: RHEUMATOID ARTHRITIS
     Route: 042
     Dates: start: 20161026

REACTIONS (11)
  - Tuberculosis [Recovered/Resolved]
  - Dyspnoea [Recovered/Resolved]
  - Tremor [Recovering/Resolving]
  - Malaise [Recovering/Resolving]
  - Osteoporosis [Not Recovered/Not Resolved]
  - Skin mass [Not Recovered/Not Resolved]
  - Diabetes mellitus [Recovered/Resolved]
  - Pain in extremity [Not Recovered/Not Resolved]
  - Infusion related reaction [Recovered/Resolved]
  - Tendonitis [Not Recovered/Not Resolved]
  - Blood pressure increased [Recovering/Resolving]

NARRATIVE: CASE EVENT DATE: 2005
